FAERS Safety Report 23766276 (Version 2)
Quarter: 2024Q2

REPORT INFORMATION
  Report Type: Spontaneous
  Country: US (occurrence: US)
  Receive Date: 20240422
  Receipt Date: 20240426
  Transmission Date: 20240716
  Serious: Yes (Other)
  Sender: FDA-Public Use
  Company Number: US-ABBVIE-5727163

PATIENT
  Sex: Female

DRUGS (1)
  1. REFRESH LIQUIGEL [Suspect]
     Active Substance: CARBOXYMETHYLCELLULOSE SODIUM
     Indication: Dry eye
     Route: 047

REACTIONS (7)
  - Retinal vein occlusion [Unknown]
  - Ophthalmoplegia [Unknown]
  - Unevaluable event [Unknown]
  - Hypoacusis [Unknown]
  - Eye disorder [Unknown]
  - Lacrimation decreased [Unknown]
  - Glaucoma [Unknown]
